FAERS Safety Report 6681743-6 (Version None)
Quarter: 2010Q2

REPORT INFORMATION
  Report Type: 
  Country: None (occurrence: None)
  Receive Date: 20100414
  Receipt Date: 20100406
  Transmission Date: 20101027
  Serious: Yes (Other)
  Sender: FDA-Public Use
  Company Number: ZA-TEVA-230484ISR

PATIENT
  Sex: Female

DRUGS (5)
  1. METHOTREXATE [Suspect]
     Indication: RHEUMATOID ARTHRITIS
     Dates: start: 20010424
  2. ABATACEPT [Suspect]
     Indication: RHEUMATOID ARTHRITIS
     Route: 042
     Dates: start: 20081218
  3. PLACEBO [Suspect]
     Indication: RHEUMATOID ARTHRITIS
     Route: 058
     Dates: start: 20081218
  4. PREDNISOLONE [Concomitant]
     Dates: start: 20010424
  5. DICLOFENAC SODIUM [Concomitant]
     Dates: start: 20010424

REACTIONS (1)
  - BASAL CELL CARCINOMA [None]
